FAERS Safety Report 5569086-5 (Version None)
Quarter: 2007Q4

REPORT INFORMATION
  Report Type: 
  Country: None (occurrence: None)
  Receive Date: 20071220
  Receipt Date: 20071001
  Transmission Date: 20080405
  Serious: No
  Sender: FDA-Public Use
  Company Number: A0661424A

PATIENT
  Age: 68 Year
  Sex: Male
  Weight: 76.8 kg

DRUGS (3)
  1. AVODART [Suspect]
     Dosage: .5MG PER DAY
     Route: 048
     Dates: start: 20070619
  2. ASA BABY [Concomitant]
  3. SUPPLEMENT [Concomitant]

REACTIONS (3)
  - DRUG INEFFECTIVE [None]
  - DYSKINESIA [None]
  - TINNITUS [None]
